FAERS Safety Report 13609448 (Version 2)
Quarter: 2017Q2

REPORT INFORMATION
  Report Type: Spontaneous
  Country: US (occurrence: US)
  Receive Date: 20170602
  Receipt Date: 20170605
  Transmission Date: 20170830
  Serious: No
  Sender: FDA-Public Use
  Company Number: US-PFIZER INC-2882912

PATIENT
  Age: 49 Year
  Sex: Female
  Weight: 122.4 kg

DRUGS (4)
  1. KETOROLAC TROMETHAMINE. [Suspect]
     Active Substance: KETOROLAC TROMETHAMINE
     Indication: ARTHRITIS
     Dosage: NOT REPORTED
     Dates: start: 20141201
  2. LEVOTHYROXINE. [Concomitant]
     Active Substance: LEVOTHYROXINE
     Indication: HYPOTHYROIDISM
     Dosage: NOT REPORTED, FREQ: 1 DAY; INTERVAL: 1
     Route: 048
  3. KETOROLAC TROMETHAMINE. [Suspect]
     Active Substance: KETOROLAC TROMETHAMINE
     Dosage: NOT REPORTED
     Dates: start: 20150223
  4. DICLOFENAC [Concomitant]
     Active Substance: DICLOFENAC
     Indication: ANTIINFLAMMATORY THERAPY
     Dosage: NOT REPORTED, FREQ: 1 DAY; INTERVAL: 1
     Route: 048

REACTIONS (5)
  - Product quality issue [Unknown]
  - Tendon pain [Not Recovered/Not Resolved]
  - Poor quality drug administered [Unknown]
  - Tendonitis [Not Recovered/Not Resolved]
  - Drug ineffective [Not Recovered/Not Resolved]
